FAERS Safety Report 24389211 (Version 3)
Quarter: 2025Q1

REPORT INFORMATION
  Report Type: Spontaneous
  Country: JP (occurrence: JP)
  Receive Date: 20241003
  Receipt Date: 20250104
  Transmission Date: 20250408
  Serious: No
  Sender: NOVARTIS
  Company Number: JP-002147023-NVSJ2024JP006467

PATIENT
  Sex: Female
  Weight: 69 kg

DRUGS (2)
  1. KESIMPTA [Suspect]
     Active Substance: OFATUMUMAB
     Indication: Multiple sclerosis
     Dosage: 20 MG, QMO
     Route: 058
     Dates: start: 20211202, end: 20220317
  2. KESIMPTA [Suspect]
     Active Substance: OFATUMUMAB
     Route: 058
     Dates: start: 20230719

REACTIONS (1)
  - Maternal exposure during pregnancy [Unknown]
